FAERS Safety Report 12203023 (Version 2)
Quarter: 2016Q1

REPORT INFORMATION
  Report Type: Spontaneous
  Country: US (occurrence: US)
  Receive Date: 20160323
  Receipt Date: 20160329
  Transmission Date: 20160526
  Serious: Yes (Other)
  Sender: FDA-Public Use
  Company Number: US-009507513-1603USA008975

PATIENT
  Age: 58 Year
  Sex: Female

DRUGS (11)
  1. ABACAVIR. [Suspect]
     Active Substance: ABACAVIR
     Indication: HIV INFECTION
  2. FOSAMPRENAVIR CALCIUM (+) RITONAVIR [Suspect]
     Active Substance: FOSAMPRENAVIR\RITONAVIR
  3. TENOFOVIR [Suspect]
     Active Substance: TENOFOVIR
  4. EFAVIRENZ [Suspect]
     Active Substance: EFAVIRENZ
     Indication: HIV INFECTION
     Route: 065
  5. ETRAVIRINE [Suspect]
     Active Substance: ETRAVIRINE
  6. EMTRICITABINE [Suspect]
     Active Substance: EMTRICITABINE
  7. ISENTRESS [Suspect]
     Active Substance: RALTEGRAVIR POTASSIUM
     Route: 048
  8. DIDANOSINE. [Suspect]
     Active Substance: DIDANOSINE
     Indication: HIV INFECTION
     Route: 065
  9. LOPINAVIR (+) RITONAVIR [Suspect]
     Active Substance: LOPINAVIR\RITONAVIR
  10. LAMIVUDINE. [Suspect]
     Active Substance: LAMIVUDINE
  11. ZIDOVUDINE. [Suspect]
     Active Substance: ZIDOVUDINE

REACTIONS (1)
  - Drug ineffective [Unknown]
